FAERS Safety Report 4469569-5 (Version None)
Quarter: 2004Q4

REPORT INFORMATION
  Report Type: 
  Country: None (occurrence: None)
  Receive Date: 20041005
  Receipt Date: 20041005
  Transmission Date: 20050328
  Serious: Yes (Hospitalization)
  Sender: FDA-Public Use
  Company Number: None

PATIENT
  Sex: Male

DRUGS (10)
  1. LITHIUM CARBONATE [Suspect]
     Indication: SCHIZOAFFECTIVE DISORDER
     Dosage: 300 MG   BID   ORAL
     Route: 048
  2. LITHIUM CARBONATE [Suspect]
     Indication: SCHIZOAFFECTIVE DISORDER
     Dosage: 150 MG   HS   ORAL
     Route: 048
  3. RISPERIDONE [Concomitant]
  4. CLOPIDOGREL [Concomitant]
  5. MELATONIN [Concomitant]
  6. B12 [Concomitant]
  7. ASPIRIN [Concomitant]
  8. TOPROL-XL [Concomitant]
  9. COZAAR [Concomitant]
  10. ATORVASTATIN CALCIUM [Concomitant]

REACTIONS (2)
  - CONFUSIONAL STATE [None]
  - MENTAL STATUS CHANGES [None]
